FAERS Safety Report 7229533-X (Version None)
Quarter: 2011Q1

REPORT INFORMATION
  Report Type: 
  Country: None (occurrence: None)
  Receive Date: 20110117
  Receipt Date: 20100806
  Transmission Date: 20110831
  Serious: No
  Sender: FDA-Public Use
  Company Number: US-TYCO HEALTHCARE/MALLINCKRODT-T201001773

PATIENT
  Sex: Male

DRUGS (3)
  1. OPTIRAY 350 [Suspect]
     Dosage: 150 ML, SINGLE
     Route: 042
     Dates: start: 20100730, end: 20100730
  2. PREDNISONE [Suspect]
     Indication: PREMEDICATION
     Dosage: 20 MG, 12 HOURS BEFORE TEST
     Dates: start: 20100730, end: 20100730
  3. PREDNISONE [Suspect]
     Dosage: 20 MG, 2 HOURS BEFORE TEST
     Dates: start: 20100730, end: 20100730

REACTIONS (2)
  - PRURITUS [None]
  - RASH [None]
